FAERS Safety Report 5752533-3 (Version None)
Quarter: 2008Q2

REPORT INFORMATION
  Report Type: 
  Country: None (occurrence: None)
  Receive Date: 20080529
  Receipt Date: 20080521
  Transmission Date: 20081010
  Serious: Yes (Death, Hospitalization)
  Sender: FDA-Public Use
  Company Number: PHHY2008JP01106

PATIENT
  Sex: Male
  Weight: 65 kg

DRUGS (5)
  1. DIOVAN [Suspect]
     Indication: HYPERTENSION
     Dosage: 80 MG QD
     Route: 048
     Dates: start: 20071217
  2. WARFARIN POTASSIUM [Suspect]
     Dosage: 4.5 MG/DAY
     Route: 048
     Dates: start: 20041213
  3. ASPIRIN [Suspect]
     Dosage: 100 MG/DAY
     Route: 048
     Dates: start: 20061117
  4. LOCHOL [Concomitant]
     Dosage: 20 MG
     Route: 048
     Dates: start: 20070208
  5. TAKEPRON [Concomitant]
     Dosage: 15 MG, UNK
     Route: 048
     Dates: start: 20061117

REACTIONS (7)
  - BLOOD PRESSURE INCREASED [None]
  - BRAIN OEDEMA [None]
  - CEREBRAL HAEMORRHAGE [None]
  - DRUG INEFFECTIVE [None]
  - HAEMATOMA [None]
  - LOSS OF CONSCIOUSNESS [None]
  - SURGERY [None]
